FAERS Safety Report 8363240-5 (Version None)
Quarter: 2012Q2

REPORT INFORMATION
  Report Type: 
  Country: None (occurrence: None)
  Receive Date: 20120516
  Receipt Date: 20111202
  Transmission Date: 20120825
  Serious: Yes (Hospitalization)
  Sender: FDA-Public Use
  Company Number: US-ALEXION-A201101826

PATIENT
  Sex: Female

DRUGS (13)
  1. ASPIRIN [Concomitant]
     Dosage: UNK
  2. FLORASTOR [Concomitant]
     Dosage: UNK
  3. POTASSIUM CHLORIDE [Concomitant]
     Dosage: UNK
  4. TRAMADOL HYDROCHLORIDE [Concomitant]
     Dosage: UNK
  5. LABETALOL HCL [Concomitant]
     Dosage: UNK
  6. VITAMIN B-12 [Concomitant]
     Dosage: UNK
  7. DIGOXIN [Suspect]
     Dosage: UNK
  8. SOLIRIS [Suspect]
     Indication: PAROXYSMAL NOCTURNAL HAEMOGLOBINURIA
     Dosage: 600 MG, QW
     Route: 042
     Dates: start: 20080717, end: 20080801
  9. NEXIUM [Concomitant]
     Dosage: UNK
  10. COZAAR [Concomitant]
     Dosage: UNK
  11. SOLIRIS [Suspect]
     Dosage: 900 MG, Q2W
     Route: 042
     Dates: start: 20080814
  12. LASIX [Concomitant]
     Dosage: UNK
  13. CARDURA [Concomitant]
     Dosage: UNK

REACTIONS (3)
  - DEHYDRATION [None]
  - TOXICITY TO VARIOUS AGENTS [None]
  - GASTROINTESTINAL HAEMORRHAGE [None]
